FAERS Safety Report 8199700-X (Version None)
Quarter: 2012Q1

REPORT INFORMATION
  Report Type: 
  Country: None (occurrence: None)
  Receive Date: 20120311
  Receipt Date: 20120301
  Transmission Date: 20120608
  Serious: Yes (Hospitalization, Other)
  Sender: FDA-Public Use
  Company Number: US-ASTRAZENECA-2012SE08397

PATIENT
  Age: 53 Year
  Sex: Female

DRUGS (20)
  1. ATENOLOL [Concomitant]
  2. DICYCLOMINE [Concomitant]
  3. FENTANYL [Concomitant]
     Dosage: 100 MG EVERY 2 DAYS
  4. NEXIUM [Suspect]
     Route: 048
  5. PHENERGAN [Concomitant]
     Dosage: EVERY THREE HOURS AS NEEDED
  6. TIZANIDINE HYDROCHLORIDE [Concomitant]
  7. CYMBALTA [Concomitant]
  8. FAMCICLOVIR [Concomitant]
  9. ASCORBIC ACID [Concomitant]
  10. DAYPRO [Concomitant]
  11. NISOLDIPINE [Concomitant]
  12. RANTIDINE HYDROCHLORIDE [Concomitant]
  13. REGLAN [Concomitant]
  14. OXYCODONE HYDROCHLORIDE [Concomitant]
  15. SUMATRIPTAN SUCCINATE [Concomitant]
  16. CARAFATE [Concomitant]
  17. PRILOSEC OTC [Suspect]
     Route: 048
  18. CALCIUM CARBONATE [Concomitant]
  19. MULTI-VITAMIN [Concomitant]
  20. PREMARIN [Concomitant]

REACTIONS (56)
  - HIATUS HERNIA [None]
  - ABDOMINAL PAIN [None]
  - NAUSEA [None]
  - FATIGUE [None]
  - COUGH [None]
  - FRUSTRATION [None]
  - CHILLS [None]
  - HEART RATE INCREASED [None]
  - URINARY INCONTINENCE [None]
  - EROSIVE OESOPHAGITIS [None]
  - DYSPNOEA [None]
  - STOMATITIS [None]
  - OEDEMA PERIPHERAL [None]
  - CHEST PAIN [None]
  - GASTRITIS EROSIVE [None]
  - GASTROOESOPHAGEAL REFLUX DISEASE [None]
  - BARRETT'S OESOPHAGUS [None]
  - BRONCHITIS [None]
  - GASTROINTESTINAL HAEMORRHAGE [None]
  - UPPER-AIRWAY COUGH SYNDROME [None]
  - PYREXIA [None]
  - OBESITY [None]
  - ENDOMETRIOSIS [None]
  - DECREASED APPETITE [None]
  - BACK PAIN [None]
  - MUSCULOSKELETAL STIFFNESS [None]
  - DYSPNOEA EXERTIONAL [None]
  - ECZEMA [None]
  - HYPOAESTHESIA [None]
  - VISUAL IMPAIRMENT [None]
  - DEPRESSION [None]
  - DRUG INEFFECTIVE [None]
  - VOMITING [None]
  - NERVE ROOT COMPRESSION [None]
  - ARTHRALGIA [None]
  - PARAESTHESIA [None]
  - INSOMNIA [None]
  - PNEUMONIA [None]
  - IMPAIRED GASTRIC EMPTYING [None]
  - DYSPEPSIA [None]
  - GASTRITIS [None]
  - INFECTION [None]
  - SNORING [None]
  - TOOTH INJURY [None]
  - ABDOMINAL PAIN UPPER [None]
  - ALOPECIA [None]
  - CARDIAC MURMUR [None]
  - ANKLE FRACTURE [None]
  - SLEEP APNOEA SYNDROME [None]
  - TEARFULNESS [None]
  - THIRST [None]
  - GASTRIC ULCER [None]
  - MUSCULAR WEAKNESS [None]
  - PELVIC PAIN [None]
  - BLOOD PRESSURE INCREASED [None]
  - ERUCTATION [None]
